FAERS Safety Report 4317970-2 (Version None)
Quarter: 2004Q1

REPORT INFORMATION
  Report Type: 
  Country: None (occurrence: None)
  Receive Date: 20040316
  Receipt Date: 20040302
  Transmission Date: 20041129
  Serious: Yes (Hospitalization, Other)
  Sender: FDA-Public Use
  Company Number: ES-GLAXOSMITHKLINE-B0326052A

PATIENT
  Age: 39 Year
  Sex: Female

DRUGS (3)
  1. ZIDOVUDINE [Suspect]
     Indication: HIV INFECTION
     Route: 065
     Dates: start: 19980101
  2. NEVIRAPINE [Suspect]
     Indication: HIV INFECTION
     Route: 065
     Dates: start: 19980101
  3. NELFINAVIR [Suspect]
     Indication: HIV INFECTION
     Route: 065
     Dates: start: 19980101

REACTIONS (18)
  - ABDOMINAL DISCOMFORT [None]
  - CARDIAC ENZYMES INCREASED [None]
  - CARDIOGENIC SHOCK [None]
  - CARDIOPULMONARY FAILURE [None]
  - CD4 LYMPHOCYTES DECREASED [None]
  - COAGULOPATHY [None]
  - DIARRHOEA [None]
  - DRUG WITHDRAWAL SYNDROME [None]
  - HEPATIC ENZYME INCREASED [None]
  - HEPATIC FAILURE [None]
  - HYPOTENSION [None]
  - LEUKOPENIA [None]
  - LYMPHOCYTOSIS [None]
  - MULTI-ORGAN FAILURE [None]
  - MYOCARDITIS [None]
  - RENAL FAILURE ACUTE [None]
  - SEPTIC SHOCK [None]
  - VENTRICULAR TACHYCARDIA [None]
